FAERS Safety Report 7645532-8 (Version None)
Quarter: 2011Q3

REPORT INFORMATION
  Report Type: 
  Country: None (occurrence: None)
  Receive Date: 20110729
  Receipt Date: 20110727
  Transmission Date: 20111222
  Serious: Yes (Hospitalization)
  Sender: FDA-Public Use
  Company Number: CH-PFIZER INC-2011065214

PATIENT
  Age: 66 Year
  Sex: Female
  Weight: 59 kg

DRUGS (10)
  1. HOVA [Suspect]
     Dosage: 1 DF, 1X/DAY
     Route: 048
     Dates: start: 20100101, end: 20100401
  2. HYDROCHLOROTHIAZID [Concomitant]
     Indication: HYPERTENSIVE HEART DISEASE
     Dosage: UNK
     Route: 048
  3. TRIMIPRAMINE MALEATE [Interacting]
     Indication: DEPRESSION
     Dosage: 150 MG, 1X/DAY
     Route: 048
  4. NORVASC [Suspect]
     Indication: HYPERTENSIVE HEART DISEASE
     Dosage: 5 MG, 1X/DAY
     Route: 048
  5. CALCIMAGON-D3 [Concomitant]
     Indication: OSTEOPOROSIS PROPHYLAXIS
  6. ATACAND [Concomitant]
     Indication: HYPERTENSIVE HEART DISEASE
     Dosage: 8 MG, 1X/DAY
     Route: 048
  7. MARCOUMAR [Suspect]
     Indication: ATRIAL FIBRILLATION
     Dosage: UNK
     Route: 048
  8. LORAZEPAM [Concomitant]
     Indication: INSOMNIA
     Dosage: 2.5 MG, 1X/DAY
     Route: 048
  9. RELAXANE [Interacting]
     Indication: NERVOUSNESS
     Dosage: 1 DF, 3X/DAY
     Route: 048
     Dates: start: 20100101, end: 20100401
  10. TORASEMIDE [Concomitant]
     Indication: HYPERTENSIVE HEART DISEASE
     Dosage: UNK
     Route: 048

REACTIONS (5)
  - GRANULOMATOUS LIVER DISEASE [None]
  - DRUG INTERACTION [None]
  - MIXED LIVER INJURY [None]
  - HEPATIC ENZYME INCREASED [None]
  - CHOLANGITIS [None]
